FAERS Safety Report 6549783-5 (Version None)
Quarter: 2010Q1

REPORT INFORMATION
  Report Type: 
  Country: None (occurrence: None)
  Receive Date: 20100119
  Receipt Date: 20100107
  Transmission Date: 20100710
  Serious: No
  Sender: FDA-Public Use
  Company Number: 2010AL000113

PATIENT
  Age: 6 Year
  Sex: Female

DRUGS (2)
  1. FEVERALL [Suspect]
     Indication: BONE PAIN
     Dosage: 250 MG; X1; UNK
  2. FILGRASTIM [Concomitant]

REACTIONS (6)
  - BLOOD POTASSIUM DECREASED [None]
  - BONE PAIN [None]
  - LEUKOCYTOSIS [None]
  - RHABDOMYOLYSIS [None]
  - SHIFT TO THE LEFT [None]
  - VOMITING [None]
